FAERS Safety Report 7796453-1 (Version None)
Quarter: 2011Q4

REPORT INFORMATION
  Report Type: 
  Country: None (occurrence: None)
  Receive Date: 20111005
  Receipt Date: 20110928
  Transmission Date: 20120403
  Serious: No
  Sender: FDA-Public Use
  Company Number: US-BIOGENIDEC-2011BI037466

PATIENT
  Age: 30 Year
  Sex: Female

DRUGS (4)
  1. TYLENOL-500 [Concomitant]
     Indication: PREMEDICATION
     Dates: start: 20110928
  2. BENADRYL [Concomitant]
     Indication: PREMEDICATION
     Route: 042
     Dates: start: 20110928
  3. TYSABRI [Suspect]
     Indication: MULTIPLE SCLEROSIS
     Route: 042
     Dates: start: 20110928
  4. SOLU-MEDROL [Concomitant]
     Indication: PREMEDICATION
     Dates: start: 20110928

REACTIONS (4)
  - FATIGUE [None]
  - DIZZINESS [None]
  - SOMNOLENCE [None]
  - FEELING ABNORMAL [None]
